FAERS Safety Report 17900407 (Version 1)
Quarter: 2020Q2

REPORT INFORMATION
  Report Type: Spontaneous
  Country: LB (occurrence: LB)
  Receive Date: 20200616
  Receipt Date: 20200616
  Transmission Date: 20200714
  Serious: Yes (Hospitalization, Other)
  Sender: FDA-Public Use
  Company Number: LB-TELIGENT, INC-20200600020

PATIENT

DRUGS (1)
  1. LIDOCAINE. [Suspect]
     Active Substance: LIDOCAINE
     Dosage: TWENTY ML OF 2% LIDOCAINE GEL WAS APPLIED INTRAURETHRALLY
     Route: 066

REACTIONS (1)
  - Supraventricular tachycardia [Recovered/Resolved]
